FAERS Safety Report 5674285-8 (Version None)
Quarter: 2008Q1

REPORT INFORMATION
  Report Type: 
  Country: None (occurrence: None)
  Receive Date: 20080320
  Receipt Date: 20080307
  Transmission Date: 20080703
  Serious: Yes (Death, Hospitalization)
  Sender: FDA-Public Use
  Company Number: US-BAYER-200714491BWH

PATIENT
  Age: 90 Year
  Sex: Female

DRUGS (17)
  1. AVELOX [Suspect]
     Indication: LOBAR PNEUMONIA
     Route: 042
     Dates: start: 20071001
  2. AVELOX [Suspect]
     Dosage: TOTAL DAILY DOSE: 400 MG  UNIT DOSE: 400 MG
     Route: 048
     Dates: start: 20071001, end: 20071001
  3. ROCEPHIN [Concomitant]
  4. ASPIRIN [Concomitant]
     Dosage: TOTAL DAILY DOSE: 81 MG
  5. PRILOSEC [Concomitant]
     Dosage: TOTAL DAILY DOSE: 20 MG
  6. NITROGLYCERIN [Concomitant]
  7. ZOCOR [Concomitant]
     Dosage: TOTAL DAILY DOSE: 10 MG
  8. FOLATE [Concomitant]
     Dosage: TOTAL DAILY DOSE: 1 MG
  9. REQUIP [Concomitant]
     Dosage: TOTAL DAILY DOSE: 6 MG
  10. VITAMIN D [Concomitant]
     Dosage: TOTAL DAILY DOSE: 400 IU
  11. CITRACAL +D [Concomitant]
  12. IMDUR [Concomitant]
     Dosage: TOTAL DAILY DOSE: 15 MG
  13. TOPROL-XL [Concomitant]
     Dosage: TOTAL DAILY DOSE: 25 MG
  14. MIRALAX [Concomitant]
     Dosage: TOTAL DAILY DOSE: 17 G
     Dates: end: 20071029
  15. FORTEO [Concomitant]
     Dosage: TOTAL DAILY DOSE: 20 ?G
  16. MULTI-VITAMIN [Concomitant]
  17. FERROUS SULFATE TAB [Concomitant]
     Dosage: TOTAL DAILY DOSE: 324 MG

REACTIONS (24)
  - ANAEMIA [None]
  - BLOOD CREATININE INCREASED [None]
  - BLOOD IRON DECREASED [None]
  - BLOOD UREA INCREASED [None]
  - CLOSTRIDIUM DIFFICILE COLITIS [None]
  - CLOSTRIDIUM DIFFICILE SEPSIS [None]
  - DEHYDRATION [None]
  - DIARRHOEA [None]
  - DYSPNOEA [None]
  - HAEMATOCRIT DECREASED [None]
  - HAEMOGLOBIN DECREASED [None]
  - HYPOTENSION [None]
  - HYPOXIA [None]
  - LACTIC ACIDOSIS [None]
  - NAUSEA [None]
  - OXYGEN SATURATION DECREASED [None]
  - PNEUMONIA ASPIRATION [None]
  - PYREXIA [None]
  - RESPIRATORY FAILURE [None]
  - SHOCK [None]
  - TACHYCARDIA [None]
  - TACHYPNOEA [None]
  - VOMITING [None]
  - WHITE BLOOD CELL COUNT INCREASED [None]
